FAERS Safety Report 5604484-2 (Version None)
Quarter: 2008Q1

REPORT INFORMATION
  Report Type: 
  Country: None (occurrence: None)
  Receive Date: 20080128
  Receipt Date: 20080117
  Transmission Date: 20080703
  Serious: Yes (Disabling, Other)
  Sender: FDA-Public Use
  Company Number: US-ROCHE-525673

PATIENT
  Age: 16 Year
  Sex: Female
  Weight: 30.4 kg

DRUGS (1)
  1. ACCUTANE [Suspect]
     Route: 065
     Dates: start: 20041201, end: 20050501

REACTIONS (14)
  - BLOOD TRIGLYCERIDES INCREASED [None]
  - CHAPPED LIPS [None]
  - COLITIS [None]
  - CROHN'S DISEASE [None]
  - DRY SKIN [None]
  - EPISTAXIS [None]
  - ERYTHEMA [None]
  - GASTROINTESTINAL DISORDER [None]
  - HORDEOLUM [None]
  - MILIA [None]
  - MOOD ALTERED [None]
  - PYREXIA [None]
  - RHINITIS ALLERGIC [None]
  - VIRAL INFECTION [None]
